FAERS Safety Report 24281967 (Version 2)
Quarter: 2024Q3

REPORT INFORMATION
  Report Type: Report from Study
  Country: US (occurrence: US)
  Receive Date: 20240904
  Receipt Date: 20240913
  Transmission Date: 20241016
  Serious: No
  Sender: BIOVITRUM
  Company Number: US-BIOVITRUM-2024-US-011628

PATIENT
  Age: 53 Year
  Sex: Female

DRUGS (1)
  1. KINERET [Suspect]
     Active Substance: ANAKINRA
     Indication: Product used for unknown indication
     Dosage: QD (DAILY)
     Route: 058

REACTIONS (7)
  - Injection site pain [Unknown]
  - Hypersensitivity [Unknown]
  - Injection site mass [Unknown]
  - Injection site pruritus [Unknown]
  - Injection site rash [Unknown]
  - Lethargy [Unknown]
  - Feeling abnormal [Unknown]
